FAERS Safety Report 8012888-6 (Version None)
Quarter: 2011Q4

REPORT INFORMATION
  Report Type: 
  Country: None (occurrence: None)
  Receive Date: 20111229
  Receipt Date: 20111222
  Transmission Date: 20120403
  Serious: No
  Sender: FDA-Public Use
  Company Number: US-JNJFOC-20111210869

PATIENT
  Age: 22 Year
  Sex: Male

DRUGS (2)
  1. ATIVAN [Concomitant]
     Route: 065
     Dates: start: 20110101, end: 20110101
  2. INVEGA [Suspect]
     Indication: PSYCHOTIC DISORDER
     Route: 048

REACTIONS (1)
  - TREATMENT NONCOMPLIANCE [None]
